FAERS Safety Report 4478433-7 (Version None)
Quarter: 2004Q4

REPORT INFORMATION
  Report Type: 
  Country: None (occurrence: None)
  Receive Date: 20041013
  Receipt Date: 20041004
  Transmission Date: 20050328
  Serious: Yes (Hospitalization)
  Sender: FDA-Public Use
  Company Number: FRWYE611201MAR04

PATIENT
  Age: 38 Year
  Sex: Female

DRUGS (3)
  1. SIROLIMUS  (SIROLIMUS, TABLET, 0) [Suspect]
     Indication: PROPHYLAXIS AGAINST TRANSPLANT REJECTION
     Dosage: 9 MG 1X PER 1 DAY
     Route: 048
     Dates: start: 20030731
  2. CELLCEPT [Suspect]
     Indication: PROPHYLAXIS AGAINST TRANSPLANT REJECTION
     Dosage: 1.5 G 1X PER 1 DAY
     Route: 048
     Dates: start: 20030730
  3. CORTANCYL (PREDNISONE, , 0) [Suspect]
     Indication: PROPHYLAXIS AGAINST TRANSPLANT REJECTION
     Dosage: 10 MG 1X PER 1 DAY
     Route: 048
     Dates: start: 20030731

REACTIONS (7)
  - BK VIRUS INFECTION [None]
  - ESCHERICHIA URINARY TRACT INFECTION [None]
  - HAEMATURIA [None]
  - KIDNEY TRANSPLANT REJECTION [None]
  - NEPHROPATHY [None]
  - PYELONEPHRITIS ACUTE [None]
  - STREPTOCOCCAL INFECTION [None]
